FAERS Safety Report 5636661-9 (Version None)
Quarter: 2008Q1

REPORT INFORMATION
  Report Type: 
  Country: None (occurrence: None)
  Receive Date: 20080219
  Receipt Date: 20080219
  Transmission Date: 20080703
  Serious: Yes (Hospitalization)
  Sender: FDA-Public Use
  Company Number: None

PATIENT
  Age: 77 Year
  Sex: Male

DRUGS (2)
  1. METOPROLOL TARTRATE [Suspect]
     Indication: HYPERTENSION
     Dosage: 50MG BID PO
     Route: 048
     Dates: start: 20061103, end: 20070804
  2. FELODIPINE [Suspect]
     Indication: HYPERTENSION
     Dosage: 10MG EVERY DAY PO
     Route: 048
     Dates: start: 20070420, end: 20070804

REACTIONS (4)
  - BRADYCARDIA [None]
  - DYSPNOEA [None]
  - FATIGUE [None]
  - HEADACHE [None]
